FAERS Safety Report 5052696-1 (Version None)
Quarter: 2006Q3

REPORT INFORMATION
  Report Type: 
  Country: None (occurrence: None)
  Receive Date: 20060717
  Receipt Date: 20060517
  Transmission Date: 20061208
  Serious: Yes (Hospitalization, Other)
  Sender: FDA-Public Use
  Company Number: PHBS2006JP07531

PATIENT
  Age: 66 Year
  Sex: Female

DRUGS (6)
  1. DICLOFENAC SODIUM [Suspect]
     Indication: PYREXIA
     Dates: start: 20040201
  2. SULTAMICILLIN TOSILATE [Concomitant]
     Indication: PYREXIA
     Route: 048
     Dates: start: 20040201
  3. CEFTAZIDIME [Concomitant]
     Indication: PYREXIA
     Route: 042
     Dates: start: 20040201
  4. LOXOPROFEN SODIUM [Concomitant]
     Indication: PYREXIA
     Dates: start: 20040201
  5. DOXAZOSIN MESYLATE [Concomitant]
     Indication: HYPERTENSION
     Route: 048
  6. PREDNISOLONE [Concomitant]
     Dosage: 30 MG/DAY
     Dates: start: 20040301

REACTIONS (14)
  - ANAEMIA [None]
  - BLOOD CREATININE INCREASED [None]
  - C-REACTIVE PROTEIN INCREASED [None]
  - HAEMATOCRIT DECREASED [None]
  - HAEMOGLOBIN DECREASED [None]
  - INFLAMMATION [None]
  - MONONEUROPATHY MULTIPLEX [None]
  - NEPHRITIS INTERSTITIAL [None]
  - OCCULT BLOOD POSITIVE [None]
  - PROTEIN URINE PRESENT [None]
  - PYREXIA [None]
  - RED BLOOD CELL COUNT DECREASED [None]
  - RENAL IMPAIRMENT [None]
  - VASCULITIS [None]
